FAERS Safety Report 12182759 (Version 1)
Quarter: 2016Q1

REPORT INFORMATION
  Report Type: Spontaneous
  Country: US (occurrence: None)
  Receive Date: 20160315
  Receipt Date: 20160315
  Transmission Date: 20160526
  Serious: No
  Sender: FDA-Public Use
  Company Number: None

PATIENT
  Age: 25 Year
  Sex: Male
  Weight: 62.7 kg

DRUGS (1)
  1. ERBITUX [Suspect]
     Active Substance: CETUXIMAB
     Dates: end: 20160301

REACTIONS (5)
  - Pain [None]
  - Weight decreased [None]
  - Dysphagia [None]
  - Mucosal inflammation [None]
  - Odynophagia [None]

NARRATIVE: CASE EVENT DATE: 20160307
